FAERS Safety Report 6341780-8 (Version None)
Quarter: 2009Q3

REPORT INFORMATION
  Report Type: 
  Country: None (occurrence: None)
  Receive Date: 20090901
  Receipt Date: 20090901
  Transmission Date: 20100115
  Serious: Yes (Hospitalization, Other)
  Sender: FDA-Public Use
  Company Number: None

PATIENT
  Age: 56 Year
  Sex: Male
  Weight: 68.0396 kg

DRUGS (2)
  1. HAND SANITIZER PERSONAL CARE PRODUCT INC [Suspect]
     Indication: INFECTION PROPHYLAXIS
     Dates: start: 20090810, end: 20090824
  2. HAND SANITIZER JOHNSON + JOHNSON [Suspect]
     Indication: INFECTION PROPHYLAXIS
     Dates: start: 20090810, end: 20090824

REACTIONS (3)
  - ABSCESS [None]
  - CUTANEOUS LARVA MIGRANS [None]
  - STAPHYLOCOCCAL INFECTION [None]
